FAERS Safety Report 10188887 (Version 1)
Quarter: 2014Q2

REPORT INFORMATION
  Report Type: Spontaneous
  Country: US (occurrence: US)
  Receive Date: 20140522
  Receipt Date: 20140522
  Transmission Date: 20141212
  Serious: No
  Sender: FDA-Public Use
  Company Number: US-PFIZER INC-2014139618

PATIENT
  Age: 62 Year
  Sex: Male
  Weight: 97.51 kg

DRUGS (9)
  1. CHANTIX [Suspect]
     Indication: SMOKING CESSATION THERAPY
     Dosage: 0.5 MG, 1X/DAY
     Dates: start: 201404, end: 2014
  2. CHANTIX [Suspect]
     Dosage: 0.5 MG, 2X/DAY
     Dates: start: 2014, end: 2014
  3. LOSARTAN [Concomitant]
     Indication: HYPERTENSION
     Dosage: 100 MG, DAILY
  4. ATENOLOL [Concomitant]
     Indication: HYPERTENSION
     Dosage: 50 MG, 2X/DAY
  5. OMEGA-3-ACID ETHYL ESTER [Concomitant]
     Indication: BLOOD TRIGLYCERIDES INCREASED
     Dosage: 1 G, 4X/DAY
  6. NIASPAN [Concomitant]
     Indication: BLOOD TRIGLYCERIDES INCREASED
     Dosage: 400 MG, 2X/DAY
  7. FENOFIBRATE [Concomitant]
     Indication: BLOOD CHOLESTEROL INCREASED
     Dosage: 145 MG, DAILY
  8. FOLIC ACID [Concomitant]
     Dosage: 800 MG, DAILY
  9. CRESTOR [Concomitant]
     Dosage: 10 MG, DAILY

REACTIONS (6)
  - Abnormal dreams [Recovered/Resolved]
  - Agitation [Recovered/Resolved]
  - Rash [Recovered/Resolved]
  - Somnolence [Recovered/Resolved]
  - Stupor [Recovered/Resolved]
  - Apathy [Recovered/Resolved]
